FAERS Safety Report 20890192 (Version 1)
Quarter: 2022Q2

REPORT INFORMATION
  Report Type: Spontaneous
  Country: ES (occurrence: ES)
  Receive Date: 20220530
  Receipt Date: 20220530
  Transmission Date: 20220720
  Serious: Yes (Other)
  Sender: FDA-Public Use
  Company Number: None

PATIENT
  Age: 79 Year
  Sex: Female
  Weight: 64 kg

DRUGS (7)
  1. CYCLOSPORINE [Suspect]
     Active Substance: CYCLOSPORINE
     Indication: Dermatitis
     Dosage: 50 MG (CE)
     Route: 048
     Dates: start: 20220228, end: 20220504
  2. CYCLOSPORINE [Suspect]
     Active Substance: CYCLOSPORINE
     Dosage: 100 MG (DE)
     Route: 048
     Dates: start: 20220301, end: 20220504
  3. OMEPRAZOL CINFA [Concomitant]
     Indication: Gastrointestinal haemorrhage
     Dosage: 20.0 MG C/48 HORAS
     Route: 048
     Dates: start: 20090210
  4. PARACETAMOL KERN PHARMA [Concomitant]
     Indication: Osteoarthritis
     Dosage: UNK (1.0 G DECOCE)
     Route: 048
     Dates: start: 20220322
  5. ADVENTAN [Concomitant]
     Indication: Dermatitis
     Dosage: UNK (1.0 APLIC C/24 H)
     Route: 061
     Dates: start: 20220301
  6. CETIRIZINA NORMON [Concomitant]
     Indication: Psoriasis
     Dosage: UNK (10.0 MG DE)
     Route: 048
     Dates: start: 20210720
  7. PROTOPIC [Concomitant]
     Active Substance: TACROLIMUS
     Indication: Dermatitis
     Dosage: UNK (1.0 APLIC C/12 H)
     Route: 061
     Dates: start: 20210603

REACTIONS (4)
  - Asthenia [Recovering/Resolving]
  - Hypertrichosis [Recovered/Resolved]
  - Tremor [Not Recovered/Not Resolved]
  - Hypertension [Recovered/Resolved]

NARRATIVE: CASE EVENT DATE: 20220305
